FAERS Safety Report 7871190 (Version 3)
Quarter: 2014Q1

REPORT INFORMATION
  Report Type: Spontaneous
  Country: US (occurrence: US)
  Receive Date: 20110325
  Receipt Date: 20140120
  Transmission Date: 20141002
  Serious: Yes (Hospitalization)
  Sender: FDA-Public Use
  Company Number: US-BAYER-2011-025731

PATIENT
  Age: 32 Year
  Sex: Female
  Weight: 59 kg

DRUGS (7)
  1. YAZ [Suspect]
     Indication: ACNE
     Dosage: UNK
     Dates: start: 200606, end: 20080131
  2. MIRTAZAPINE [Concomitant]
     Dosage: 15 MG, UNK
  3. LORAZEPAM [Concomitant]
  4. ASCORBIC ACID [Concomitant]
  5. REMERON [Concomitant]
     Dosage: 15 MG, QD
     Route: 048
     Dates: start: 20061025
  6. NEXIUM [Concomitant]
     Dosage: UNK
     Dates: start: 20061025
  7. RETIN-A [Concomitant]
     Route: 061

REACTIONS (7)
  - Gallbladder disorder [None]
  - Biliary dyskinesia [None]
  - Injury [None]
  - Pain [None]
  - Gastric disorder [None]
  - Gastrointestinal disorder [None]
  - Abdominal pain [None]
